FAERS Safety Report 12211799 (Version 2)
Quarter: 2016Q1

REPORT INFORMATION
  Report Type: Spontaneous
  Country: JP (occurrence: JP)
  Receive Date: 20160325
  Receipt Date: 20160331
  Transmission Date: 20160526
  Serious: Yes (Other)
  Sender: FDA-Public Use
  Company Number: JP-ELI_LILLY_AND_COMPANY-JP201603006894

PATIENT
  Age: 64 Year
  Sex: Female

DRUGS (2)
  1. GEMZAR [Suspect]
     Active Substance: GEMCITABINE HYDROCHLORIDE
     Indication: BILE DUCT CANCER STAGE IV
     Dosage: 1000 MG/M2, OTHER
     Route: 042
     Dates: start: 201501
  2. CISPLATIN. [Concomitant]
     Active Substance: CISPLATIN
     Indication: BILE DUCT CANCER STAGE IV
     Dosage: 75 MG/M2, OTHER
     Route: 042
     Dates: start: 201501

REACTIONS (4)
  - Device related infection [Recovering/Resolving]
  - Cholangitis acute [Recovering/Resolving]
  - Septic shock [Recovering/Resolving]
  - Renal impairment [Unknown]

NARRATIVE: CASE EVENT DATE: 201506
